FAERS Safety Report 4959104-7 (Version None)
Quarter: 2006Q1

REPORT INFORMATION
  Report Type: 
  Country: None (occurrence: None)
  Receive Date: 20060324
  Receipt Date: 20060316
  Transmission Date: 20060701
  Serious: Yes (Hospitalization)
  Sender: FDA-Public Use
  Company Number: US200603004379

PATIENT
  Age: 74 Year
  Sex: Male

DRUGS (2)
  1. GEMZAR [Suspect]
     Indication: BLADDER CANCER
     Dates: start: 20050101
  2. CISPLATIN [Concomitant]

REACTIONS (3)
  - DIARRHOEA [None]
  - PNEUMONIA [None]
  - UNEVALUABLE EVENT [None]
